FAERS Safety Report 4953894-5 (Version None)
Quarter: 2006Q1

REPORT INFORMATION
  Report Type: 
  Country: None (occurrence: None)
  Receive Date: 20060324
  Receipt Date: 20060324
  Transmission Date: 20060701
  Serious: No
  Sender: FDA-Public Use
  Company Number: None

PATIENT
  Sex: Female
  Weight: 61.2356 kg

DRUGS (1)
  1. ADVAIR DISKUS 250/50 [Suspect]
     Indication: PNEUMONIA
     Dosage: 1 BREATH 2 TIMES/DAY INHAL
     Route: 055
     Dates: start: 20060322, end: 20060323

REACTIONS (4)
  - FEELING ABNORMAL [None]
  - FEELING JITTERY [None]
  - HEART RATE INCREASED [None]
  - TREMOR [None]
